FAERS Safety Report 24690037 (Version 2)
Quarter: 2024Q4

REPORT INFORMATION
  Report Type: Spontaneous
  Country: JP (occurrence: JP)
  Receive Date: 20241203
  Receipt Date: 20241219
  Transmission Date: 20250114
  Serious: Yes (Hospitalization, Other)
  Sender: BRISTOL-MYERS SQUIBB COMPANY
  Company Number: JP-BRISTOL-MYERS SQUIBB COMPANY-2024-186995

PATIENT
  Age: 74 Year
  Sex: Female

DRUGS (4)
  1. ABRAXANE [Suspect]
     Active Substance: PACLITAXEL
     Indication: Metastatic gastric cancer
     Route: 041
  2. TS-1 [Suspect]
     Active Substance: GIMERACIL\OTERACIL POTASSIUM\TEGAFUR
     Indication: Metastatic gastric cancer
     Route: 048
  3. CYRAMZA [Suspect]
     Active Substance: RAMUCIRUMAB
     Indication: Metastatic gastric cancer
  4. OXALIPLATIN [Suspect]
     Active Substance: OXALIPLATIN
     Indication: Metastatic gastric cancer

REACTIONS (2)
  - Pulmonary toxicity [Unknown]
  - Off label use [Unknown]
